FAERS Safety Report 8089587-8 (Version None)
Quarter: 2012Q1

REPORT INFORMATION
  Report Type: 
  Country: None (occurrence: None)
  Receive Date: 20120128
  Receipt Date: 20110709
  Transmission Date: 20120608
  Serious: No
  Sender: FDA-Public Use
  Company Number: US-ABBOTT-11P-163-0837870-00

PATIENT
  Age: 45 Year
  Sex: Female

DRUGS (10)
  1. CYMBALTA [Concomitant]
     Indication: FIBROMYALGIA
     Dosage: 60 MG - BID
  2. METHOTREXATE [Concomitant]
     Indication: ARTHRITIS
     Dosage: 2.5 MG - 5 TABLETS WEEKLY
  3. UNKNOWN SUPPLEMENTS [Concomitant]
     Indication: PRODUCT USED FOR UNKNOWN INDICATION
  4. HUMIRA [Suspect]
     Indication: PSORIATIC ARTHROPATHY
     Dates: start: 20110501
  5. PROGESTERONE [Concomitant]
     Indication: HORMONE REPLACEMENT THERAPY
     Dosage: 100 MG - DAILY
  6. LIOTHYRONINE SODIUM [Concomitant]
     Indication: THYROID DISORDER
     Dosage: 30 MG - DAILY
  7. BUSPAR [Concomitant]
     Indication: PAIN
     Dosage: AS NEEDED
  8. BUSPAR [Concomitant]
     Indication: ANXIETY
  9. PROGESTERONE [Concomitant]
     Indication: HYSTERECTOMY
  10. ESTEROL [Concomitant]
     Indication: HORMONE REPLACEMENT THERAPY
     Dosage: 2.5 MG - DAILY

REACTIONS (6)
  - PARANASAL SINUS HYPERSECRETION [None]
  - CHEST PAIN [None]
  - HEADACHE [None]
  - UPPER RESPIRATORY TRACT CONGESTION [None]
  - PAIN [None]
  - DYSPNOEA [None]
